FAERS Safety Report 15147387 (Version 1)
Quarter: 2018Q3

REPORT INFORMATION
  Report Type: Spontaneous
  Country: AL (occurrence: AL)
  Receive Date: 20180716
  Receipt Date: 20180716
  Transmission Date: 20181010
  Serious: Yes (Life-Threatening, Hospitalization, Other)
  Sender: FDA-Public Use
  Company Number: AL-ACCORD-069490

PATIENT
  Age: 70 Year
  Sex: Male

DRUGS (2)
  1. BICALUTAMIDE. [Suspect]
     Active Substance: BICALUTAMIDE
     Indication: PROSTATE CANCER
  2. GOSERELIN/GOSERELIN ACETATE [Suspect]
     Active Substance: GOSERELIN
     Indication: PROSTATE CANCER

REACTIONS (6)
  - Supraventricular tachycardia [Recovering/Resolving]
  - Condition aggravated [Unknown]
  - Electrolyte imbalance [Recovered/Resolved]
  - Vertigo [Unknown]
  - Torsade de pointes [Recovering/Resolving]
  - Atrial tachycardia [Recovering/Resolving]
